FAERS Safety Report 4652872-3 (Version None)
Quarter: 2005Q2

REPORT INFORMATION
  Report Type: 
  Country: None (occurrence: None)
  Receive Date: 20050502
  Receipt Date: 20050422
  Transmission Date: 20051028
  Serious: No
  Sender: FDA-Public Use
  Company Number: 2005PK00695

PATIENT
  Age: 63 Year
  Sex: Female
  Weight: 83 kg

DRUGS (2)
  1. BELOC ZOK [Suspect]
     Indication: HYPERTENSION
     Dosage: 50 MG DAILY, PO
     Route: 048
     Dates: start: 20040101, end: 20050322
  2. MARCOUMAR [Concomitant]

REACTIONS (4)
  - CD4/CD8 RATIO INCREASED [None]
  - EOSINOPHIL COUNT INCREASED [None]
  - LUNG DISORDER [None]
  - NEUTROPHIL COUNT INCREASED [None]
